FAERS Safety Report 4539225-3 (Version None)
Quarter: 2004Q4

REPORT INFORMATION
  Report Type: 
  Country: None (occurrence: None)
  Receive Date: 20041222
  Receipt Date: 20041118
  Transmission Date: 20050328
  Serious: Yes (Death)
  Sender: FDA-Public Use
  Company Number: 8008348

PATIENT
  Age: 19 Year
  Sex: Female

DRUGS (2)
  1. KEPPRA [Suspect]
     Indication: EPILEPSY
     Dosage: 3 G / D PO
     Route: 048
  2. TOPIRAMAT [Concomitant]

REACTIONS (2)
  - MYOCARDITIS [None]
  - SUDDEN DEATH [None]
